FAERS Safety Report 21684294 (Version 5)
Quarter: 2024Q4

REPORT INFORMATION
  Report Type: Report from Study
  Country: US (occurrence: US)
  Receive Date: 20221205
  Receipt Date: 20241018
  Transmission Date: 20250114
  Serious: No
  Sender: NOVARTIS
  Company Number: US-002147023-NVSC2022US282362

PATIENT
  Sex: Female
  Weight: 152 kg

DRUGS (1)
  1. KISQALI [Suspect]
     Active Substance: RIBOCICLIB
     Indication: Product used for unknown indication
     Dosage: UNK, QD
     Route: 048
     Dates: start: 20220811

REACTIONS (13)
  - Neck pain [Unknown]
  - Influenza [Unknown]
  - Rhinorrhoea [Unknown]
  - Nasopharyngitis [Unknown]
  - Sinus congestion [Unknown]
  - Sneezing [Unknown]
  - Chills [Unknown]
  - Headache [Unknown]
  - Constipation [Unknown]
  - Musculoskeletal stiffness [Unknown]
  - Gastroenteritis viral [Recovered/Resolved]
  - Vomiting [Recovered/Resolved]
  - Diarrhoea [Recovered/Resolved]
